FAERS Safety Report 24831997 (Version 1)
Quarter: 2025Q1

REPORT INFORMATION
  Report Type: Spontaneous
  Country: US (occurrence: None)
  Receive Date: 20250110
  Receipt Date: 20250110
  Transmission Date: 20250409
  Serious: No
  Sender: FDA-CTU
  Company Number: None

PATIENT
  Age: 89 Year
  Sex: Female
  Weight: 53.52 kg

DRUGS (5)
  1. OLMESARTAN [Suspect]
     Active Substance: OLMESARTAN
     Indication: Hypertension
     Dosage: OTHER QUANTITY : TABLETS;?FREQUENCY : DAILY;?
     Route: 048
     Dates: start: 20240404, end: 20240830
  2. PRAVASTATIN [Concomitant]
     Active Substance: PRAVASTATIN
  3. hydrocholorathiazade [Concomitant]
  4. VITAMIN D3 [Concomitant]
     Active Substance: CHOLECALCIFEROL
  5. IRON [Concomitant]
     Active Substance: IRON

REACTIONS (4)
  - Nightmare [None]
  - Restless legs syndrome [None]
  - Tachycardia [None]
  - Periorbital swelling [None]

NARRATIVE: CASE EVENT DATE: 20240830
